FAERS Safety Report 5361277-1 (Version None)
Quarter: 2007Q2

REPORT INFORMATION
  Report Type: 
  Country: None (occurrence: None)
  Receive Date: 20070614
  Receipt Date: 20070604
  Transmission Date: 20071010
  Serious: Yes (Disabling)
  Sender: FDA-Public Use
  Company Number: OSCN-NO-0702S-0080

PATIENT
  Age: 72 Year
  Sex: Female

DRUGS (4)
  1. OMNISCAN [Suspect]
     Indication: ANEURYSM
     Dosage: SEE IMAGE
     Route: 042
     Dates: start: 20050502, end: 20050502
  2. OMNISCAN [Suspect]
     Indication: ANEURYSM
     Dosage: SEE IMAGE
     Route: 042
     Dates: start: 20050504, end: 20050504
  3. OMNISCAN [Suspect]
     Indication: ANEURYSM
     Dosage: SEE IMAGE
     Route: 042
     Dates: start: 20050603, end: 20050603
  4. OMNISCAN [Suspect]
     Indication: ANEURYSM
     Dosage: SEE IMAGE
     Route: 042
     Dates: start: 20050822, end: 20050822

REACTIONS (7)
  - BALANCE DISORDER [None]
  - DYSPHAGIA [None]
  - NEPHROGENIC FIBROSING DERMOPATHY [None]
  - OEDEMA PERIPHERAL [None]
  - PRURITUS [None]
  - SCLERODERMA [None]
  - SKIN HYPERTROPHY [None]
